FAERS Safety Report 16946473 (Version 1)
Quarter: 2019Q4

REPORT INFORMATION
  Report Type: Spontaneous
  Country: UM (occurrence: UM)
  Receive Date: 20190829
  Receipt Date: 20190829
  Transmission Date: 20200122
  Serious: Yes (Hospitalization)
  Sender: FDA-Public Use
  Company Number: None

PATIENT
  Age: 28 Year
  Sex: Male
  Weight: 118.4 kg

DRUGS (2)
  1. GEMCITABINE. [Suspect]
     Active Substance: GEMCITABINE
     Dosage: ?          OTHER FREQUENCY:D1 + D8;?
     Route: 042
  2. RIBOCICLIB. [Suspect]
     Active Substance: RIBOCICLIB

REACTIONS (11)
  - Acute respiratory failure [None]
  - Cardiac tamponade [None]
  - Gait disturbance [None]
  - Pulmonary mass [None]
  - Oedema peripheral [None]
  - Cancer fatigue [None]
  - Physical deconditioning [None]
  - Supraventricular tachycardia [None]
  - Asthenia [None]
  - Muscular weakness [None]
  - Effusion [None]

NARRATIVE: CASE EVENT DATE: 20180713
